FAERS Safety Report 5649066-1 (Version None)
Quarter: 2008Q1

REPORT INFORMATION
  Report Type: 
  Country: None (occurrence: None)
  Receive Date: 20080304
  Receipt Date: 20080226
  Transmission Date: 20080703
  Serious: Yes (Life-Threatening, Hospitalization, Other)
  Sender: FDA-Public Use
  Company Number: HQWYE048226DEC06

PATIENT
  Sex: Female
  Weight: 57 kg

DRUGS (18)
  1. MYLOTARG [Suspect]
     Indication: ACUTE MYELOID LEUKAEMIA RECURRENT
     Route: 041
     Dates: start: 20060911, end: 20060911
  2. CIPROFLOXACIN [Concomitant]
     Indication: PROPHYLAXIS
     Dosage: 400 MG/DAY
     Route: 048
     Dates: start: 20060802, end: 20061107
  3. DIFLUCAN [Concomitant]
     Indication: PROPHYLAXIS
     Dosage: 100 MG/DAY
     Route: 048
     Dates: start: 20060802, end: 20061107
  4. FLUVOXAMINE MALEATE [Concomitant]
     Dosage: 50 MG/DAY
     Route: 048
     Dates: start: 20060814
  5. DEPAS [Concomitant]
     Dosage: 1.5 MG/DAY
     Route: 048
     Dates: start: 20060814
  6. ZANTAC 150 [Concomitant]
     Dosage: 300 MG/DAY
     Route: 048
     Dates: start: 20060802
  7. AMOBAN [Concomitant]
     Dosage: 10 MG/DAY
     Route: 048
     Dates: start: 20060802
  8. MAGNESIUM OXIDE [Concomitant]
     Dosage: 1500 MG/DAY
     Route: 048
     Dates: start: 20060805
  9. GLYSENNID [Concomitant]
     Dosage: 24 MG/DAY
     Route: 048
     Dates: start: 20060803, end: 20061105
  10. BETAMETHASONE [Concomitant]
     Indication: PROPHYLAXIS
     Dosage: 2DF/DAY EED
     Route: 050
     Dates: start: 20060911, end: 20060915
  11. FIRSTCIN [Concomitant]
     Route: 041
     Dates: start: 20060911, end: 20060922
  12. EXACIN [Concomitant]
     Route: 041
     Dates: start: 20060911, end: 20060922
  13. LASIX [Concomitant]
     Dosage: NOT PROVIDED
     Route: 041
     Dates: start: 20060911, end: 20060918
  14. ETOPOSIDE [Concomitant]
     Indication: ACUTE MYELOID LEUKAEMIA RECURRENT
     Dosage: NOT PROVIDED
     Route: 041
     Dates: start: 20061127, end: 20061202
  15. FLUDARA [Concomitant]
     Indication: ACUTE MYELOID LEUKAEMIA RECURRENT
     Dosage: NOT PROVIDED
     Route: 042
     Dates: start: 20061127, end: 20061202
  16. CYCLOPHOSPHAMIDE [Suspect]
     Indication: ACUTE MYELOID LEUKAEMIA RECURRENT
     Dosage: NOT PROVIDED
     Route: 041
     Dates: start: 20070128, end: 20070129
  17. CYTARABINE [Suspect]
     Indication: ACUTE MYELOID LEUKAEMIA RECURRENT
     Dosage: ^HIGH-DOSE^
     Route: 042
     Dates: start: 20060911, end: 20060915
  18. CYTARABINE [Suspect]
     Dosage: NOT PROVIDED
     Route: 042
     Dates: start: 20061127, end: 20061202

REACTIONS (5)
  - ANAEMIA [None]
  - BACTERAEMIA [None]
  - FEBRILE NEUTROPENIA [None]
  - VENOOCCLUSIVE LIVER DISEASE [None]
  - WHITE BLOOD CELL COUNT DECREASED [None]
